FAERS Safety Report 11804785 (Version 2)
Quarter: 2015Q4

REPORT INFORMATION
  Report Type: Spontaneous
  Country: CA (occurrence: CA)
  Receive Date: 20151205
  Receipt Date: 20151219
  Transmission Date: 20160305
  Serious: Yes (Hospitalization, Other)
  Sender: FDA-Public Use
  Company Number: CA-AMGEN-CANSP2015127953

PATIENT
  Age: 64 Year
  Sex: Male

DRUGS (4)
  1. PREGABALIN. [Concomitant]
     Active Substance: PREGABALIN
     Dosage: 75 MG, QD
     Route: 048
     Dates: start: 20151022, end: 20151119
  2. PONATINIB [Concomitant]
     Active Substance: PONATINIB
     Indication: ACUTE LYMPHOCYTIC LEUKAEMIA
     Dosage: 45 MG, QD
     Route: 048
     Dates: start: 20150911
  3. BLINCYTO [Suspect]
     Active Substance: BLINATUMOMAB
     Indication: ACUTE LYMPHOCYTIC LEUKAEMIA
     Dosage: 28 MUG, QD
     Route: 042
     Dates: start: 20151026, end: 20151120
  4. AMLODIPINE [Concomitant]
     Active Substance: AMLODIPINE BESYLATE
     Dosage: 5 MG, QD
     Route: 048
     Dates: start: 20151022

REACTIONS (12)
  - Somnolence [Unknown]
  - Memory impairment [Unknown]
  - Nervous system disorder [Unknown]
  - Acute kidney injury [Recovered/Resolved]
  - Hypophagia [Unknown]
  - B precursor type acute leukaemia [Unknown]
  - Disseminated intravascular coagulation [Unknown]
  - Hypercalcaemia [Recovered/Resolved]
  - Fluid intake reduced [Unknown]
  - Disease progression [Unknown]
  - Road traffic accident [Unknown]
  - Confusional state [Recovered/Resolved]

NARRATIVE: CASE EVENT DATE: 201511
